FAERS Safety Report 16639917 (Version 1)
Quarter: 2019Q3

REPORT INFORMATION
  Report Type: Spontaneous
  Country: DE (occurrence: DE)
  Receive Date: 20190727
  Receipt Date: 20190727
  Transmission Date: 20191004
  Serious: Yes (Other)
  Sender: FDA-Public Use
  Company Number: DE-ACCORD-149031

PATIENT
  Age: 50 Year
  Sex: Male

DRUGS (1)
  1. IBANDRONIC ACID ACCORD [Suspect]
     Active Substance: IBANDRONIC ACID
     Indication: PRODUCT USED FOR UNKNOWN INDICATION
     Dosage: STRENGTH: 3 MG PRE-FILLED SYRINGE

REACTIONS (1)
  - Deafness [Not Recovered/Not Resolved]
